FAERS Safety Report 15998760 (Version 2)
Quarter: 2019Q2

REPORT INFORMATION
  Report Type: Spontaneous
  Country: US (occurrence: US)
  Receive Date: 20190223
  Receipt Date: 20190412
  Transmission Date: 20190711
  Serious: Yes (Other)
  Sender: FDA-Public Use
  Company Number: US-ASTRAZENECA-2018SF27119

PATIENT
  Age: 23098 Day
  Sex: Male
  Weight: 79.4 kg

DRUGS (28)
  1. PREVACID 24 HR [Suspect]
     Active Substance: LANSOPRAZOLE
     Route: 065
  2. PREDNISONE. [Concomitant]
     Active Substance: PREDNISONE
  3. CARISOPRODOL. [Concomitant]
     Active Substance: CARISOPRODOL
  4. METHOCARBAMOL. [Concomitant]
     Active Substance: METHOCARBAMOL
  5. FUROSEMIDE. [Concomitant]
     Active Substance: FUROSEMIDE
  6. NEXIUM 24HR [Suspect]
     Active Substance: ESOMEPRAZOLE MAGNESIUM
     Route: 048
  7. DAPSONE. [Concomitant]
     Active Substance: DAPSONE
  8. HYDROCODONE [Concomitant]
     Active Substance: HYDROCODONE
  9. LEVOFLOXACIN. [Concomitant]
     Active Substance: LEVOFLOXACIN
  10. AZITHROMYCIN ANHYDROUS. [Concomitant]
     Active Substance: AZITHROMYCIN ANHYDROUS
  11. AMLODIPINE [Concomitant]
     Active Substance: AMLODIPINE BESYLATE
  12. ISOSORBIDE. [Concomitant]
     Active Substance: ISOSORBIDE
  13. CIPROFLOXACIN. [Concomitant]
     Active Substance: CIPROFLOXACIN
  14. METRONIDAZOLE. [Concomitant]
     Active Substance: METRONIDAZOLE
  15. DOXYCYCLINE. [Concomitant]
     Active Substance: DOXYCYCLINE
  16. ADVAIR HFA [Concomitant]
     Active Substance: FLUTICASONE PROPIONATE\SALMETEROL XINAFOATE
  17. PRILOSEC [Suspect]
     Active Substance: OMEPRAZOLE MAGNESIUM
     Route: 048
     Dates: start: 20000101, end: 20151201
  18. NEXIUM [Suspect]
     Active Substance: ESOMEPRAZOLE MAGNESIUM
     Route: 048
  19. TAMSULOSIN [Concomitant]
     Active Substance: TAMSULOSIN
  20. CLONIDINE. [Concomitant]
     Active Substance: CLONIDINE
  21. METOPROLOL. [Concomitant]
     Active Substance: METOPROLOL
  22. PRILOSEC OTC [Suspect]
     Active Substance: OMEPRAZOLE MAGNESIUM
     Route: 048
  23. AUGMENTIN [Concomitant]
     Active Substance: AMOXICILLIN\CLAVULANATE POTASSIUM
  24. LEVOFLOXACIN. [Concomitant]
     Active Substance: LEVOFLOXACIN
  25. CLINDAMYCIN. [Concomitant]
     Active Substance: CLINDAMYCIN
  26. PRILOSEC [Suspect]
     Active Substance: OMEPRAZOLE MAGNESIUM
     Route: 048
  27. PREVACID [Suspect]
     Active Substance: LANSOPRAZOLE
     Route: 065
  28. ZYRTEC [Concomitant]
     Active Substance: CETIRIZINE HYDROCHLORIDE

REACTIONS (6)
  - Chronic kidney disease [Not Recovered/Not Resolved]
  - Nephrogenic anaemia [Unknown]
  - Renal injury [Unknown]
  - End stage renal disease [Not Recovered/Not Resolved]
  - Acute kidney injury [Not Recovered/Not Resolved]
  - Renal failure [Unknown]

NARRATIVE: CASE EVENT DATE: 20170430
